FAERS Safety Report 25600347 (Version 2)
Quarter: 2025Q3

REPORT INFORMATION
  Report Type: Report from Study
  Country: EU (occurrence: EU)
  Receive Date: 20250724
  Receipt Date: 20250808
  Transmission Date: 20251020
  Serious: No
  Sender: TG THERAPEUTICS
  Company Number: EU-TG THERAPEUTICS INC.-TGT005548

PATIENT

DRUGS (4)
  1. UBLITUXIMAB [Suspect]
     Active Substance: UBLITUXIMAB
     Indication: Multiple sclerosis
     Route: 042
     Dates: start: 20240905, end: 20240905
  2. UBLITUXIMAB [Suspect]
     Active Substance: UBLITUXIMAB
     Route: 042
     Dates: start: 20241108, end: 20241108
  3. UBLITUXIMAB [Suspect]
     Active Substance: UBLITUXIMAB
     Route: 042
     Dates: start: 20250514, end: 20250514
  4. METHYLPREDNISOLONE [Concomitant]
     Active Substance: METHYLPREDNISOLONE
     Indication: Multiple sclerosis relapse
     Route: 042
     Dates: start: 20241025, end: 20241028

REACTIONS (3)
  - Genital infection fungal [Not Recovered/Not Resolved]
  - Onychomycosis [Not Recovered/Not Resolved]
  - Fungal foot infection [Not Recovered/Not Resolved]

NARRATIVE: CASE EVENT DATE: 20241031
